FAERS Safety Report 10184641 (Version 3)
Quarter: 2014Q3

REPORT INFORMATION
  Report Type: Spontaneous
  Country: IT (occurrence: None)
  Receive Date: 20140519
  Receipt Date: 20140731
  Transmission Date: 20150326
  Serious: Yes (Hospitalization, Other)
  Sender: FDA-Public Use
  Company Number: 2014MPI00416

PATIENT
  Age: 15 Year
  Sex: Female
  Weight: 40 kg

DRUGS (3)
  1. ADCETRIS [Suspect]
     Active Substance: BRENTUXIMAB VEDOTIN
     Indication: HODGKIN^S DISEASE
     Route: 042
     Dates: start: 20140219, end: 20140409
  2. PARACETAMOL (PARACETAMOL) [Concomitant]
     Active Substance: ACETAMINOPHEN
  3. PREDNISONE (PREDNISONE ACETATE) [Concomitant]

REACTIONS (11)
  - Cough [None]
  - Angioedema [None]
  - Off label use [None]
  - Infusion related reaction [None]
  - Burning sensation [None]
  - Hyperpyrexia [None]
  - Pruritus [None]
  - Generalised oedema [None]
  - Abnormal weight gain [None]
  - Fluid retention [None]
  - Anaphylactic reaction [None]

NARRATIVE: CASE EVENT DATE: 20140409
